FAERS Safety Report 25506648 (Version 1)
Quarter: 2025Q3

REPORT INFORMATION
  Report Type: Spontaneous
  Country: CN (occurrence: CN)
  Receive Date: 20250702
  Receipt Date: 20250702
  Transmission Date: 20251021
  Serious: Yes (Hospitalization)
  Sender: KYOWA
  Company Number: CN-KYOWAKIRIN-2025KK012273

PATIENT

DRUGS (2)
  1. TOREMIFENE [Suspect]
     Active Substance: TOREMIFENE
     Indication: Breast neoplasm
     Dosage: (60 MG (60 MG,1 IN 1 D))
     Route: 048
     Dates: start: 20170917, end: 20250120
  2. TAMOXIFEN CITRATE [Suspect]
     Active Substance: TAMOXIFEN CITRATE
     Indication: Breast cancer
     Dosage: (20 MG (20 MG,1 IN 1 D))
     Route: 048
     Dates: start: 20250121

REACTIONS (3)
  - Endometrial thickening [Recovering/Resolving]
  - Adenomyosis [Recovering/Resolving]
  - Uterine leiomyoma [Recovering/Resolving]

NARRATIVE: CASE EVENT DATE: 20250608
